FAERS Safety Report 5656786-1 (Version None)
Quarter: 2008Q1

REPORT INFORMATION
  Report Type: 
  Country: None (occurrence: None)
  Receive Date: 20080219
  Receipt Date: 20071203
  Transmission Date: 20080703
  Serious: No
  Sender: FDA-Public Use
  Company Number: WAES 0712USA01191

PATIENT
  Age: 49 Year
  Sex: Female

DRUGS (6)
  1. JANUVIA [Suspect]
     Indication: DIABETES MELLITUS
     Dosage: 100 MG/DAILY/PO
     Route: 048
     Dates: start: 20070401
  2. AVALIDE [Concomitant]
  3. COREG [Concomitant]
  4. GLUCOPHAGE [Concomitant]
  5. VYTORIN [Concomitant]
  6. ASPIRIN [Concomitant]

REACTIONS (1)
  - BLOOD URINE PRESENT [None]
